FAERS Safety Report 13581735 (Version 2)
Quarter: 2017Q2

REPORT INFORMATION
  Report Type: Spontaneous
  Country: ES (occurrence: ES)
  Receive Date: 20170525
  Receipt Date: 20170529
  Transmission Date: 20170830
  Serious: Yes (Other)
  Sender: FDA-Public Use
  Company Number: ES-AMGEN-ESPSP2017079116

PATIENT
  Age: 25 Year
  Sex: Female

DRUGS (4)
  1. ENBREL [Suspect]
     Active Substance: ETANERCEPT
     Indication: ANKYLOSING SPONDYLITIS
     Dosage: 50 MG, WEEKLY
     Route: 058
     Dates: start: 20170222, end: 20170315
  2. ANAGASTRA [Concomitant]
     Active Substance: PANTOPRAZOLE SODIUM
     Indication: ANKYLOSING SPONDYLITIS
     Dosage: 20 MG, 1X/DAY
     Route: 048
  3. ARAVA [Concomitant]
     Active Substance: LEFLUNOMIDE
     Indication: ANKYLOSING SPONDYLITIS
     Dosage: 20 MG, 1X/DAY
     Route: 048
     Dates: start: 201509
  4. DACORTIN [Concomitant]
     Active Substance: PREDNISONE
     Indication: ANKYLOSING SPONDYLITIS
     Dosage: 5 MG, 1X/DAY
     Route: 048

REACTIONS (6)
  - Cough [Recovered/Resolved]
  - Musculoskeletal chest pain [Recovered/Resolved]
  - Night sweats [Recovered/Resolved]
  - Abdominal pain [Recovered/Resolved]
  - Dyspnoea [Recovered/Resolved]
  - Fatigue [Recovered/Resolved]

NARRATIVE: CASE EVENT DATE: 20170223
